FAERS Safety Report 13038558 (Version 1)
Quarter: 2016Q4

REPORT INFORMATION
  Report Type: Spontaneous
  Country: IE (occurrence: IE)
  Receive Date: 20161219
  Receipt Date: 20161219
  Transmission Date: 20170207
  Serious: Yes (Other)
  Sender: FDA-Public Use
  Company Number: IE-JNJFOC-20161206553

PATIENT
  Sex: Male

DRUGS (3)
  1. CALPOL [Suspect]
     Active Substance: ACETAMINOPHEN
     Indication: VIRAL INFECTION
     Dosage: 4 YEARS AGO, USED FOR A COUPLE OF DAYS
     Route: 065
     Dates: start: 2012
  2. CALPOL [Suspect]
     Active Substance: ACETAMINOPHEN
     Indication: PYREXIA
     Dosage: 4 YEARS AGO, USED FOR A COUPLE OF DAYS
     Route: 065
     Dates: start: 2012
  3. VENTOLIN [Concomitant]
     Active Substance: ALBUTEROL SULFATE
     Indication: ASTHMA
     Route: 065

REACTIONS (3)
  - Rash generalised [Unknown]
  - Hypersensitivity [Unknown]
  - Lip swelling [Unknown]
